FAERS Safety Report 9064176 (Version 1)
Quarter: 2013Q1

REPORT INFORMATION
  Report Type: Spontaneous
  Country: US (occurrence: US)
  Receive Date: 20130213
  Receipt Date: 20130213
  Transmission Date: 20140127
  Serious: Yes (Death)
  Sender: FDA-Public Use
  Company Number: CHPA2012US018908

PATIENT
  Age: 60 Year
  Sex: Male

DRUGS (2)
  1. 4 WAY MENTHOLATED NASAL SPRAY [Suspect]
     Indication: DYSPNOEA
     Dosage: UNK, UNK
  2. 4 WAY MENTHOLATED NASAL SPRAY [Suspect]
     Dosage: UNK

REACTIONS (3)
  - Death [Fatal]
  - Sneezing [Recovered/Resolved]
  - Drug ineffective [Unknown]
